FAERS Safety Report 5246940-5 (Version None)
Quarter: 2007Q1

REPORT INFORMATION
  Report Type: 
  Country: None (occurrence: None)
  Receive Date: 20070226
  Receipt Date: 20070214
  Transmission Date: 20070707
  Serious: Yes (Hospitalization)
  Sender: FDA-Public Use
  Company Number: JP-PFIZER INC-2007003088

PATIENT
  Sex: Female
  Weight: 52 kg

DRUGS (2)
  1. ZITHROMAC [Suspect]
     Route: 048
     Dates: start: 20070105, end: 20070107
  2. MUCODYNE [Concomitant]

REACTIONS (3)
  - ARTHRALGIA [None]
  - HEADACHE [None]
  - PYREXIA [None]
